FAERS Safety Report 17582963 (Version 1)
Quarter: 2020Q1

REPORT INFORMATION
  Report Type: Spontaneous
  Country: US (occurrence: US)
  Receive Date: 20200325
  Receipt Date: 20200325
  Transmission Date: 20200409
  Serious: No
  Sender: FDA-Public Use
  Company Number: US-ENDO PHARMACEUTICALS INC-2019-105626

PATIENT
  Age: 63 Year
  Sex: Male
  Weight: 70.75 kg

DRUGS (1)
  1. AVEED [Suspect]
     Active Substance: TESTOSTERONE UNDECANOATE
     Indication: HYPOGONADISM
     Dosage: UNK UNKNOWN, UNKNOWN; FIRST INJECTION; ONE MONTH LATER THAN EVERT 10 WEEKS
     Route: 030
     Dates: start: 20190417

REACTIONS (2)
  - Product dose omission [Unknown]
  - Blood testosterone increased [Unknown]

NARRATIVE: CASE EVENT DATE: 20190504
